FAERS Safety Report 26078921 (Version 1)
Quarter: 2025Q4

REPORT INFORMATION
  Report Type: Spontaneous
  Country: US (occurrence: US)
  Receive Date: 20251123
  Receipt Date: 20251123
  Transmission Date: 20260118
  Serious: No
  Sender: GALPHARM INTERNATIONAL
  Company Number: US-PERRIGO-25US003187

PATIENT
  Age: 44 Year
  Sex: Female
  Weight: 71.655 kg

DRUGS (1)
  1. OPILL [Suspect]
     Active Substance: NORGESTREL
     Indication: Oral contraception
     Dosage: 0.075 MG, QD
     Route: 048
     Dates: start: 20250215

REACTIONS (2)
  - Intermenstrual bleeding [Not Recovered/Not Resolved]
  - Polymenorrhoea [Not Recovered/Not Resolved]

NARRATIVE: CASE EVENT DATE: 20250213
